FAERS Safety Report 14275260 (Version 7)
Quarter: 2018Q2

REPORT INFORMATION
  Report Type: Report from Study
  Country: CA (occurrence: CA)
  Receive Date: 20171212
  Receipt Date: 20180516
  Transmission Date: 20180711
  Serious: Yes (Other)
  Sender: FDA-Public Use
  Company Number: CA-GLAXOSMITHKLINE-CA2017GSK143209

PATIENT
  Age: 43 Year
  Sex: Male

DRUGS (6)
  1. MEPOLIZUMAB [Suspect]
     Active Substance: MEPOLIZUMAB
     Dosage: 100 MG, Z
     Route: 042
  2. MEPOLIZUMAB [Suspect]
     Active Substance: MEPOLIZUMAB
     Dosage: 100 MG, Z
     Route: 042
  3. MEPOLIZUMAB [Suspect]
     Active Substance: MEPOLIZUMAB
     Dosage: 100 MG, Z
     Route: 042
  4. MEPOLIZUMAB [Suspect]
     Active Substance: MEPOLIZUMAB
     Dosage: 100 MG, Z
     Route: 042
  5. VENTOLIN [Suspect]
     Active Substance: ALBUTEROL SULFATE
     Indication: ASTHMA
     Dosage: UNK
  6. MEPOLIZUMAB [Suspect]
     Active Substance: MEPOLIZUMAB
     Indication: ASTHMA
     Dosage: 100 MG, Z (MONTHLY)
     Route: 042

REACTIONS (9)
  - Bronchitis [Unknown]
  - Respiratory tract congestion [Not Recovered/Not Resolved]
  - Sinusitis [Not Recovered/Not Resolved]
  - Condition aggravated [Unknown]
  - Loss of personal independence in daily activities [Recovered/Resolved]
  - Decreased activity [Unknown]
  - Respiratory tract infection [Unknown]
  - Blood pressure increased [Unknown]
  - Therapeutic response decreased [Unknown]

NARRATIVE: CASE EVENT DATE: 20170908
